FAERS Safety Report 4316262-5 (Version None)
Quarter: 2004Q1

REPORT INFORMATION
  Report Type: 
  Country: None (occurrence: None)
  Receive Date: 20040312
  Receipt Date: 20030903
  Transmission Date: 20041129
  Serious: Yes (Hospitalization)
  Sender: FDA-Public Use
  Company Number: DE-BRISTOL-MYERS SQUIBB COMPANY-12373007

PATIENT
  Age: 64 Year
  Sex: Male

DRUGS (6)
  1. ATAZANAVIR [Suspect]
     Indication: HIV INFECTION
     Dosage: INTERRUPTED ON 09-AUG-2003, RESTARTED ON 25-AUG-2003.
     Route: 048
     Dates: start: 20030519
  2. DIDANOSINE [Suspect]
     Dosage: INTERRUPTED 09-AUG-2003, RESTARTED 25-AUG-2003.
     Dates: start: 20030519
  3. RITONAVIR [Suspect]
     Dosage: INTERRUPTED 09-AUG-2003, RESTARTED 25-AUG-2003.
     Dates: start: 20021128
  4. TENOFOVIR [Suspect]
     Dosage: INTERRUPTED ON 09-AUG-2003, RESTARTED ON 25-AUG-2003.
     Dates: start: 20030519
  5. DAPSONE [Concomitant]
  6. FLUCONAZOLE [Concomitant]

REACTIONS (9)
  - AIDS ENCEPHALOPATHY [None]
  - CYTOMEGALOVIRUS GASTRITIS [None]
  - CYTOMEGALOVIRUS INFECTION [None]
  - DIARRHOEA [None]
  - EXANTHEM [None]
  - PNEUMONIA [None]
  - PROCTALGIA [None]
  - VIRAEMIA [None]
  - VOMITING [None]
